FAERS Safety Report 7003502-7 (Version None)
Quarter: 2010Q3

REPORT INFORMATION
  Report Type: 
  Country: None (occurrence: None)
  Receive Date: 20100916
  Receipt Date: 20100901
  Transmission Date: 20110219
  Serious: Yes (Hospitalization, Other)
  Sender: FDA-Public Use
  Company Number: 1000015081

PATIENT
  Age: 30 Year
  Sex: Female
  Weight: 48 kg

DRUGS (7)
  1. ESCITALOPRAM [Suspect]
     Indication: DEPRESSION
     Dosage: 20 MG (20 MG, 1 IN 1 D), ORAL
     Route: 048
     Dates: start: 20090217, end: 20100705
  2. ATARAX [Concomitant]
  3. EFFORTIL (ETILEFRINE HYDROCHLORIDE) (ETILEFRINE HYDROCHLORIDE) [Concomitant]
  4. IMIGRANE (SUMATRIPTAN) (SUMATRIPTAN) [Concomitant]
  5. LEVONORGESTREL W/ ETHINYLESTRADIOL(LEVONORGESTREL, ETHINYL ESTRADIOL)( [Concomitant]
  6. TARDYFERON (TARDYFERON) (TARDYFERON) [Concomitant]
  7. TANGANIL (ACETYLLEUCINE) (ACETYLLEUCINE) [Concomitant]

REACTIONS (15)
  - DIZZINESS [None]
  - FLUSHING [None]
  - HEADACHE [None]
  - HOT FLUSH [None]
  - HYPOTENSION [None]
  - LOSS OF CONSCIOUSNESS [None]
  - MALAISE [None]
  - OFF LABEL USE [None]
  - PALLOR [None]
  - PALPITATIONS [None]
  - PHOSPHENES [None]
  - SINUS TACHYCARDIA [None]
  - SYNCOPE [None]
  - VERTIGO [None]
  - VISION BLURRED [None]
